FAERS Safety Report 25354400 (Version 1)
Quarter: 2025Q2

REPORT INFORMATION
  Report Type: Spontaneous
  Country: TW (occurrence: TW)
  Receive Date: 20250523
  Receipt Date: 20250523
  Transmission Date: 20250716
  Serious: Yes (Death)
  Sender: MERCK SHARP & DOHME LLC
  Company Number: TW-009507513-2288678

PATIENT
  Age: 85 Year
  Sex: Male

DRUGS (23)
  1. JANUMET [Suspect]
     Active Substance: METFORMIN HYDROCHLORIDE\SITAGLIPTIN PHOSPHATE
     Indication: Type 2 diabetes mellitus
     Dosage: 50MG/850MG/TAB MORNING AND NIGHT
     Route: 048
     Dates: start: 20250418, end: 20250424
  2. ULTRAVIST [Concomitant]
     Active Substance: IOPROMIDE
     Indication: Angioplasty
     Dates: start: 20250524, end: 20250524
  3. Pipe Tazo [Concomitant]
  4. Clincin [Concomitant]
  5. PGE1 (Prostaglandin E1) [Concomitant]
  6. DIPYRIDAMOLE [Concomitant]
     Active Substance: DIPYRIDAMOLE
  7. DIMETHICONE [Concomitant]
     Active Substance: DIMETHICONE
  8. Mopride [Concomitant]
  9. Linlip [Concomitant]
  10. DIOVAN [Concomitant]
     Active Substance: VALSARTAN
  11. Acetal [Concomitant]
  12. ULTANE [Concomitant]
     Active Substance: SEVOFLURANE
     Indication: Anaesthesia
     Dates: start: 20250421, end: 20250421
  13. PROPOFOL [Concomitant]
     Active Substance: PROPOFOL
     Indication: Anaesthesia
     Dates: start: 20250421, end: 20250421
  14. Methasone [Concomitant]
     Indication: Anaesthesia
     Dates: start: 20250421, end: 20250421
  15. XYLOCAINE [Concomitant]
     Active Substance: LIDOCAINE HYDROCHLORIDE
     Indication: Anaesthesia
     Dates: start: 20250421, end: 20250421
  16. FENTANYL [Concomitant]
     Active Substance: FENTANYL
     Indication: Anaesthesia
     Dates: start: 20250421, end: 20250421
  17. NOREPINEPHRINE [Concomitant]
     Active Substance: NOREPINEPHRINE
     Indication: Anaesthesia
     Dates: start: 20250424, end: 20250424
  18. Holdipine [Concomitant]
     Indication: Anaesthesia
     Dates: start: 20250424, end: 20250424
  19. SODIUM BICARBONATE [Concomitant]
     Active Substance: SODIUM BICARBONATE
     Indication: Anaesthesia
     Dates: start: 20250424, end: 20250424
  20. PROTAMINE [Concomitant]
     Active Substance: PROTAMINE
     Indication: Anaesthesia
     Dates: start: 20250424, end: 20250424
  21. ROCURONIUM BROMIDE [Concomitant]
     Active Substance: ROCURONIUM BROMIDE
     Indication: Anaesthesia
     Dates: start: 20250424, end: 20250424
  22. BRIDION [Concomitant]
     Active Substance: SUGAMMADEX SODIUM
     Indication: Anaesthesia
     Dates: start: 20250424, end: 20250424
  23. IODIXANOL [Concomitant]
     Active Substance: IODIXANOL
     Indication: Computerised tomogram
     Dates: start: 20250418, end: 20250418

REACTIONS (1)
  - Metabolic acidosis [Fatal]

NARRATIVE: CASE EVENT DATE: 20250424
